FAERS Safety Report 9327071 (Version 1)
Quarter: 2013Q2

REPORT INFORMATION
  Report Type: Spontaneous
  Country: US (occurrence: US)
  Receive Date: 20130604
  Receipt Date: 20130604
  Transmission Date: 20140414
  Serious: No
  Sender: FDA-Public Use
  Company Number: US-AMGEN-USASP2013035449

PATIENT
  Age: 62 Year
  Sex: Male

DRUGS (2)
  1. ENBREL [Suspect]
     Indication: PSORIASIS
     Dosage: UNK
     Dates: start: 2006
  2. METHOTREXATE [Concomitant]
     Indication: PSORIASIS
     Dosage: UNK
     Dates: start: 2006

REACTIONS (1)
  - Tuberculin test positive [Unknown]
